FAERS Safety Report 7360934-5 (Version None)
Quarter: 2011Q1

REPORT INFORMATION
  Report Type: 
  Country: None (occurrence: None)
  Receive Date: 20110318
  Receipt Date: 20110314
  Transmission Date: 20110831
  Serious: Yes (Hospitalization)
  Sender: FDA-Public Use
  Company Number: US-ELI_LILLY_AND_COMPANY-US201103004389

PATIENT
  Age: 81 Year
  Sex: Female

DRUGS (2)
  1. HERCEPTIN [Concomitant]
     Dates: start: 20101207
  2. GEMZAR [Suspect]
     Indication: LUNG NEOPLASM MALIGNANT

REACTIONS (7)
  - DIZZINESS [None]
  - URINE OUTPUT DECREASED [None]
  - PNEUMONIA [None]
  - MOOD ALTERED [None]
  - PRURITUS [None]
  - NAUSEA [None]
  - RASH GENERALISED [None]
